FAERS Safety Report 4838937-1 (Version None)
Quarter: 2005Q4

REPORT INFORMATION
  Report Type: 
  Country: None (occurrence: None)
  Receive Date: 20051024
  Receipt Date: 20050907
  Transmission Date: 20060501
  Serious: No
  Sender: FDA-Public Use
  Company Number: 217567

PATIENT
  Age: 44 Year
  Sex: Female
  Weight: 72.6 kg

DRUGS (4)
  1. XOLAIR [Suspect]
     Indication: ASTHMA
     Dosage: 225 MG, Q2W, SUBCUTANEOUS
     Route: 058
     Dates: start: 20050504, end: 20050818
  2. SINGULAIR [Concomitant]
  3. ZYRTEC [Concomitant]
  4. PEPCID [Concomitant]

REACTIONS (1)
  - URTICARIA GENERALISED [None]
